FAERS Safety Report 8536157-0 (Version None)
Quarter: 2012Q3

REPORT INFORMATION
  Report Type: 
  Country: None (occurrence: None)
  Receive Date: 20120725
  Receipt Date: 20120711
  Transmission Date: 20120928
  Serious: Yes (Life-Threatening)
  Sender: FDA-Public Use
  Company Number: JP-ELI_LILLY_AND_COMPANY-JP201207000413

PATIENT
  Sex: Male
  Weight: 67 kg

DRUGS (9)
  1. ACTOS [Concomitant]
     Indication: DIABETES MELLITUS
     Dosage: 7.5 MG, QD
     Route: 048
     Dates: start: 20120606, end: 20120627
  2. CYMBALTA [Suspect]
     Indication: DIABETIC NEUROPATHY
     Dosage: 20 MG, QD
     Route: 048
     Dates: start: 20120625, end: 20120627
  3. BASEN [Concomitant]
     Dosage: UNK
     Route: 048
     Dates: start: 20120629
  4. AVAPRO [Concomitant]
     Indication: HYPERTENSION
     Dosage: 10 MG, QD
     Route: 048
     Dates: start: 20120606
  5. SITAGLIPTIN PHOSPHATE [Concomitant]
     Dosage: UNK
     Route: 048
     Dates: start: 20120629
  6. NEUROTROPIN                        /06251301/ [Concomitant]
     Indication: SPINAL COMPRESSION FRACTURE
     Dosage: 8 IU, BID
     Route: 048
     Dates: start: 20120606
  7. AMARYL [Concomitant]
     Indication: DIABETES MELLITUS
     Dosage: 2 MG, QD
     Route: 048
     Dates: start: 20120606, end: 20120627
  8. SITAGLIPTIN PHOSPHATE [Concomitant]
     Indication: DIABETES MELLITUS
     Dosage: 50 MG, QD
     Route: 048
     Dates: start: 20120606, end: 20120627
  9. BASEN [Concomitant]
     Indication: DIABETES MELLITUS
     Dosage: 0.3 MG, BID
     Route: 048
     Dates: start: 20120606, end: 20120627

REACTIONS (1)
  - HYPOGLYCAEMIA [None]
